FAERS Safety Report 4810521-5 (Version None)
Quarter: 2005Q4

REPORT INFORMATION
  Report Type: 
  Country: None (occurrence: None)
  Receive Date: 20051025
  Receipt Date: 20051025
  Transmission Date: 20060501
  Serious: Yes (Other)
  Sender: FDA-Public Use
  Company Number: None

PATIENT
  Age: 74 Year
  Sex: Male
  Weight: 69.9 kg

DRUGS (25)
  1. DILAUDID [Suspect]
  2. CARBOXYMETHYLCELLULOSE NA 1% OPTH SOLN [Concomitant]
  3. ALBUTEROL [Concomitant]
  4. ISOSORBIDE DINITRATE [Concomitant]
  5. SIMVASTATIN [Concomitant]
  6. GATIFLOXACIN [Concomitant]
  7. CEFTRIAXONE [Concomitant]
  8. ASPIRIN [Concomitant]
  9. CLOPIDOGREL BISULFATE [Concomitant]
  10. CARVEDILOL [Concomitant]
  11. SENNOSIDES [Concomitant]
  12. RANITIDINE HCL [Concomitant]
  13. LUBRICATING OPH OINT [Concomitant]
  14. NITROGLYCERIN [Concomitant]
  15. GATIFLOXACIN [Concomitant]
  16. FUROSEMIDE [Concomitant]
  17. ACETAMINOPHEN [Concomitant]
  18. ACETAMINOPHEN AND HYDROCODONE BITARTRATE [Concomitant]
  19. IPRATROPIUM BROMIDE [Concomitant]
  20. ALBUTEROL SOLN (PREMIX) [Concomitant]
  21. DOCUSATE SODIUM [Concomitant]
  22. BISACODYL [Concomitant]
  23. HYDROMORPHONE HCL [Concomitant]
  24. ISOSORBIDE DINITRATE [Concomitant]
  25. TRIAMCINOLONE [Concomitant]

REACTIONS (1)
  - HYPOTENSION [None]
